FAERS Safety Report 16640900 (Version 1)
Quarter: 2019Q3

REPORT INFORMATION
  Report Type: Report from Study
  Country: US (occurrence: US)
  Receive Date: 20190729
  Receipt Date: 20190729
  Transmission Date: 20191004
  Serious: Yes (Other)
  Sender: FDA-Public Use
  Company Number: US-ROCHE-2357127

PATIENT
  Age: 86 Year
  Sex: Female
  Weight: 72.1 kg

DRUGS (3)
  1. ATEZOLIZUMAB. [Suspect]
     Active Substance: ATEZOLIZUMAB
     Indication: BLADDER CANCER
     Dosage: 8 CYCLES
     Route: 042
     Dates: start: 20180705
  2. SOTALOL. [Concomitant]
     Active Substance: SOTALOL
  3. AMIODARONE [Concomitant]
     Active Substance: AMIODARONE
     Route: 048
     Dates: start: 20180712

REACTIONS (2)
  - Chronic kidney disease [Recovered/Resolved]
  - Nephritis [Not Recovered/Not Resolved]

NARRATIVE: CASE EVENT DATE: 20180719
